FAERS Safety Report 6256677-1 (Version None)
Quarter: 2009Q2

REPORT INFORMATION
  Report Type: 
  Country: None (occurrence: None)
  Receive Date: 20090630
  Receipt Date: 20090630
  Transmission Date: 20091009
  Serious: Yes (Hospitalization, Other)
  Sender: FDA-Public Use
  Company Number: None

PATIENT
  Age: 61 Year
  Sex: Female
  Weight: 79.3795 kg

DRUGS (1)
  1. MOMETASONE FUROATE [Suspect]
     Indication: ALOPECIA
     Dosage: ONCE IN THE EVENIN TOP
     Route: 061
     Dates: start: 20081219, end: 20081222

REACTIONS (2)
  - BALANCE DISORDER [None]
  - VERTIGO [None]
